FAERS Safety Report 17005875 (Version 1)
Quarter: 2019Q4

REPORT INFORMATION
  Report Type: Spontaneous
  Country: GR (occurrence: GR)
  Receive Date: 20191107
  Receipt Date: 20191107
  Transmission Date: 20200122
  Serious: Yes (Other)
  Sender: FDA-Public Use
  Company Number: GR-MYLANLABS-2019M1106201

PATIENT
  Age: 28 Year
  Sex: Male

DRUGS (2)
  1. CARBOPLATIN. [Suspect]
     Active Substance: CARBOPLATIN
     Indication: TESTICULAR EMBRYONAL CARCINOMA
     Dosage: UNK
     Route: 065
     Dates: start: 201602, end: 201604
  2. ETOPOSIDE. [Suspect]
     Active Substance: ETOPOSIDE
     Indication: TESTICULAR EMBRYONAL CARCINOMA
     Dosage: UNK
     Route: 065
     Dates: start: 201602, end: 201604

REACTIONS (4)
  - Therapeutic response decreased [Unknown]
  - Disease recurrence [Unknown]
  - Germ cell cancer [Unknown]
  - Metastases to central nervous system [Unknown]

NARRATIVE: CASE EVENT DATE: 201608
